FAERS Safety Report 12615590 (Version 6)
Quarter: 2018Q2

REPORT INFORMATION
  Report Type: Report from Study
  Country: CA (occurrence: CA)
  Receive Date: 20160802
  Receipt Date: 20180603
  Transmission Date: 20180711
  Serious: Yes (Hospitalization, Other)
  Sender: FDA-Public Use
  Company Number: CA-BRISTOL-MYERS SQUIBB COMPANY-BMS-2016-061709

PATIENT
  Age: 66 Year
  Sex: Female

DRUGS (4)
  1. ABATACEPT [Suspect]
     Active Substance: ABATACEPT
     Indication: RHEUMATOID ARTHRITIS
     Dosage: 1000 MG, Q4WK
     Route: 042
     Dates: start: 20130306
  2. PREDNISONE. [Concomitant]
     Active Substance: PREDNISONE
     Indication: PRODUCT USED FOR UNKNOWN INDICATION
     Route: 065
  3. CELEBREX [Concomitant]
     Active Substance: CELECOXIB
     Indication: PRODUCT USED FOR UNKNOWN INDICATION
     Route: 065
  4. DILAUDID [Concomitant]
     Active Substance: HYDROMORPHONE HYDROCHLORIDE
     Indication: PRODUCT USED FOR UNKNOWN INDICATION
     Route: 065

REACTIONS (12)
  - Neck pain [Recovering/Resolving]
  - Arthralgia [Unknown]
  - Blood disorder [Unknown]
  - Pain [Unknown]
  - Musculoskeletal pain [Recovering/Resolving]
  - Haemorrhagic disorder [Unknown]
  - Rotator cuff syndrome [Unknown]
  - Tooth disorder [Unknown]
  - Gait disturbance [Unknown]
  - Dysstasia [Unknown]
  - Sensitivity of teeth [Unknown]
  - Fatigue [Unknown]

NARRATIVE: CASE EVENT DATE: 20180523
